FAERS Safety Report 23924752 (Version 1)
Quarter: 2024Q2

REPORT INFORMATION
  Report Type: Spontaneous
  Country: US (occurrence: None)
  Receive Date: 20240530
  Receipt Date: 20240530
  Transmission Date: 20240716
  Serious: Yes (Other)
  Sender: FDA-Public Use
  Company Number: None

PATIENT
  Age: 35 Year
  Sex: Female

DRUGS (1)
  1. KESIMPTA [Suspect]
     Active Substance: OFATUMUMAB
     Indication: Multiple sclerosis
     Dosage: OTHER FREQUENCY : EVERY 28 DAYS;?
     Route: 030
     Dates: start: 20220101

REACTIONS (3)
  - Endolymphatic hydrops [None]
  - Fungal foot infection [None]
  - Onychomadesis [None]

NARRATIVE: CASE EVENT DATE: 20230401
